FAERS Safety Report 8560531 (Version 3)
Quarter: 2015Q2

REPORT INFORMATION
  Report Type: Spontaneous
  Country: US (occurrence: US)
  Receive Date: 20120514
  Receipt Date: 20150604
  Transmission Date: 20150821
  Serious: Yes (Other)
  Sender: FDA-Public Use
  Company Number: US-BAYER-2012-046309

PATIENT
  Age: 27 Year
  Sex: Female

DRUGS (4)
  1. GIANVI [Suspect]
     Active Substance: DROSPIRENONE\ETHINYL ESTRADIOL
     Dosage: UNK
     Dates: start: 200807, end: 20080819
  2. YASMIN [Suspect]
     Active Substance: DROSPIRENONE\ETHINYL ESTRADIOL
     Dosage: UNK
     Dates: start: 200807, end: 20080819
  3. OCELLA [Suspect]
     Active Substance: DROSPIRENONE\ETHINYL ESTRADIOL
     Dosage: UNK
     Dates: start: 200807, end: 20080819
  4. YAZ [Suspect]
     Active Substance: DROSPIRENONE\ETHINYL ESTRADIOL
     Dosage: UNK
     Dates: start: 200807, end: 20080819

REACTIONS (7)
  - Anhedonia [None]
  - Emotional distress [None]
  - Pain [None]
  - Injury [None]
  - Quality of life decreased [None]
  - Anxiety [None]
  - Pulmonary embolism [None]

NARRATIVE: CASE EVENT DATE: 20080819
